FAERS Safety Report 5711127-6 (Version None)
Quarter: 2008Q2

REPORT INFORMATION
  Report Type: 
  Country: None (occurrence: None)
  Receive Date: 20080417
  Receipt Date: 20080417
  Transmission Date: 20081010
  Serious: Yes (Other)
  Sender: FDA-Public Use
  Company Number: None

PATIENT
  Age: 65 Year
  Sex: Female
  Weight: 51.8 kg

DRUGS (12)
  1. ZOLPIDEM [Suspect]
     Indication: INSOMNIA
     Dosage: 1 TAB ONCE AT BEDTIME PO
     Route: 048
     Dates: start: 20080328, end: 20080328
  2. ALBUTEROL [Concomitant]
  3. FLONASE [Concomitant]
  4. MUCINEX [Concomitant]
  5. HEPARIN [Concomitant]
  6. DILAUDID [Concomitant]
  7. MORPHINE [Concomitant]
  8. INSULIN [Concomitant]
  9. LISINOPRIL [Concomitant]
  10. SPRIVIA [Concomitant]
  11. MAXZIDE [Concomitant]
  12. TPN [Concomitant]

REACTIONS (3)
  - ABNORMAL BEHAVIOUR [None]
  - DISORIENTATION [None]
  - MYDRIASIS [None]
